FAERS Safety Report 8678181 (Version 2)
Quarter: 2012Q4

REPORT INFORMATION
  Report Type: 
  Country: FR (occurrence: FR)
  Receive Date: 20120723
  Receipt Date: 20120924
  Transmission Date: 20130627
  Serious: Yes (Hospitalization, Other)
  Sender: FDA-Public Use
  Company Number: FR-ELI_LILLY_AND_COMPANY-FR201207002746

PATIENT
  Age: 63 Year
  Sex: Male

DRUGS (6)
  1. PROZAC [Suspect]
     Dosage: UNK, unknown
     Route: 048
     Dates: start: 20120511, end: 20120525
  2. TAHOR [Concomitant]
     Dosage: 80 mg, qd
     Dates: start: 20120510, end: 20120525
  3. ASPEGIC [Concomitant]
     Dosage: 250 mg, UNK
  4. PARIET [Concomitant]
     Dosage: 20 mg, UNK
  5. COVERSYL [Concomitant]
     Dosage: 5 mg, UNK
  6. AMLOR [Concomitant]
     Dosage: 5 mg, UNK

REACTIONS (2)
  - Drug-induced liver injury [Recovering/Resolving]
  - Cholestasis [Recovering/Resolving]
